FAERS Safety Report 4801117-X (Version None)
Quarter: 2005Q4

REPORT INFORMATION
  Report Type: 
  Country: None (occurrence: None)
  Receive Date: 20051011
  Receipt Date: 20050929
  Transmission Date: 20060501
  Serious: Yes (Disabling)
  Sender: FDA-Public Use
  Company Number: HQWYE764530SEP05

PATIENT
  Age: 39 Year
  Sex: Male

DRUGS (2)
  1. EFFEXOR XR [Suspect]
     Indication: DEPRESSION
     Dosage: 75 MG 1X PER 1 DAY, ORAL
     Route: 048
     Dates: start: 20050301, end: 20050729
  2. PANADEINE FORTE (CODEINE PHOSPHATE/PARACETAMOL) [Concomitant]

REACTIONS (3)
  - TINNITUS [None]
  - TUNNEL VISION [None]
  - VISION BLURRED [None]
